FAERS Safety Report 18402780 (Version 1)
Quarter: 2020Q4

REPORT INFORMATION
  Report Type: Spontaneous
  Country: US (occurrence: US)
  Receive Date: 20201020
  Receipt Date: 20201020
  Transmission Date: 20210114
  Serious: No
  Sender: FDA-Public Use
  Company Number: US-009507513-2010USA005237

PATIENT
  Age: 29 Year
  Sex: Male

DRUGS (2)
  1. COLISTIN [Concomitant]
     Active Substance: COLISTIN
     Indication: PSEUDOMONAS INFECTION
     Dosage: UNK
  2. ZERBAXA [Suspect]
     Active Substance: CEFTOLOZANE SULFATE\TAZOBACTAM SODIUM
     Indication: PSEUDOMONAS INFECTION
     Dosage: UNK

REACTIONS (1)
  - Off label use [Unknown]
